FAERS Safety Report 9572732 (Version 1)
Quarter: 2013Q3

REPORT INFORMATION
  Report Type: Spontaneous
  Country: US (occurrence: None)
  Receive Date: 20130930
  Receipt Date: 20130930
  Transmission Date: 20140515
  Serious: Yes (Hospitalization)
  Sender: FDA-Public Use
  Company Number: None

PATIENT
  Age: 56 Year
  Sex: Female
  Weight: 53.6 kg

DRUGS (3)
  1. FERRIPROX [Suspect]
     Indication: HAEMOCHROMATOSIS
     Route: 048
     Dates: start: 20120606, end: 20130825
  2. FERRIPROX [Suspect]
     Indication: TRANSFUSION RELATED COMPLICATION
     Route: 048
     Dates: start: 20120606, end: 20130825
  3. FERRIPROX [Suspect]
     Indication: THALASSAEMIA
     Route: 048
     Dates: start: 20120606, end: 20130825

REACTIONS (2)
  - Asthenia [None]
  - Hypotension [None]
